FAERS Safety Report 24199995 (Version 6)
Quarter: 2025Q1

REPORT INFORMATION
  Report Type: Spontaneous
  Country: CA (occurrence: CA)
  Receive Date: 20240812
  Receipt Date: 20250310
  Transmission Date: 20250409
  Serious: Yes (Hospitalization)
  Sender: PFIZER
  Company Number: CA-PFIZER INC-PV202300184707

PATIENT
  Age: 39 Year
  Sex: Female
  Weight: 58 kg

DRUGS (11)
  1. TRAZIMERA [Suspect]
     Active Substance: TRASTUZUMAB-QYYP
     Indication: Breast cancer
     Dates: start: 20230926
  2. TRAZIMERA [Suspect]
     Active Substance: TRASTUZUMAB-QYYP
     Dates: start: 20231107
  3. TRAZIMERA [Suspect]
     Active Substance: TRASTUZUMAB-QYYP
     Dates: start: 20231107
  4. TRAZIMERA [Suspect]
     Active Substance: TRASTUZUMAB-QYYP
     Dates: start: 20240103
  5. TRAZIMERA [Suspect]
     Active Substance: TRASTUZUMAB-QYYP
     Dates: start: 20240312
  6. TRAZIMERA [Suspect]
     Active Substance: TRASTUZUMAB-QYYP
     Dates: start: 20240423
  7. TRAZIMERA [Suspect]
     Active Substance: TRASTUZUMAB-QYYP
     Dates: start: 20240716
  8. TRAZIMERA [Suspect]
     Active Substance: TRASTUZUMAB-QYYP
     Route: 042
     Dates: start: 20240813
  9. CALCIUM [Concomitant]
     Active Substance: CALCIUM
     Dosage: 3 DF, 1X/DAY, 3 TABS AT NIGHT
  10. IRON [Concomitant]
     Active Substance: IRON
  11. LACOSAMIDE [Concomitant]
     Active Substance: LACOSAMIDE

REACTIONS (8)
  - Hydrocephalus [Unknown]
  - Vision blurred [Unknown]
  - Diplopia [Unknown]
  - Blood pressure abnormal [Unknown]
  - Blood pressure diastolic decreased [Unknown]
  - Weight decreased [Unknown]
  - Nasopharyngitis [Unknown]
  - Off label use [Unknown]

NARRATIVE: CASE EVENT DATE: 20231001
